FAERS Safety Report 5611957-5 (Version None)
Quarter: 2008Q1

REPORT INFORMATION
  Report Type: 
  Country: None (occurrence: None)
  Receive Date: 20080204
  Receipt Date: 20080125
  Transmission Date: 20080703
  Serious: Yes (Other)
  Sender: FDA-Public Use
  Company Number: FR-BAYER-200812139GPV

PATIENT
  Sex: Female

DRUGS (1)
  1. MAGNEVIST [Suspect]
     Indication: DRUG USE FOR UNKNOWN INDICATION
     Route: 065
     Dates: start: 20080121, end: 20080121

REACTIONS (4)
  - DERMATITIS ALLERGIC [None]
  - DYSPNOEA [None]
  - MUSCLE SPASMS [None]
  - VOMITING [None]
